FAERS Safety Report 25484601 (Version 1)
Quarter: 2025Q2

REPORT INFORMATION
  Report Type: Spontaneous
  Country: US (occurrence: None)
  Receive Date: 20250626
  Receipt Date: 20250626
  Transmission Date: 20250716
  Serious: Yes (Life-Threatening, Hospitalization, Disabling, Other)
  Sender: FDA-CTU
  Company Number: None

PATIENT
  Age: 47 Year
  Sex: Female
  Weight: 58.5 kg

DRUGS (5)
  1. TIRZEPATIDE [Suspect]
     Active Substance: TIRZEPATIDE
     Indication: Weight control
     Route: 050
     Dates: start: 20240501, end: 20240704
  2. CERTIZINE [Concomitant]
  3. PEPCID [Concomitant]
     Active Substance: FAMOTIDINE
  4. LORAZEPAM CHROMOLYN [Concomitant]
  5. MULTIPLE SUPPLEMENTS [Concomitant]

REACTIONS (11)
  - Anaphylactic shock [None]
  - Loss of consciousness [None]
  - Respiratory arrest [None]
  - Mast cell activation syndrome [None]
  - Fatigue [None]
  - Anxiety [None]
  - Myositis [None]
  - Arthralgia [None]
  - Pain [None]
  - Product prescribing issue [None]
  - Product use complaint [None]

NARRATIVE: CASE EVENT DATE: 20240705
